FAERS Safety Report 9988657 (Version 1)
Quarter: 2014Q1

REPORT INFORMATION
  Report Type: Spontaneous
  Country: DE (occurrence: DE)
  Receive Date: 20140310
  Receipt Date: 20140310
  Transmission Date: 20141002
  Serious: Yes (Congenital Anomaly, Other)
  Sender: FDA-Public Use
  Company Number: DE-DRREDDYS-GER/GER/14/0038645

PATIENT
  Sex: Male

DRUGS (6)
  1. METOPROLOL [Suspect]
     Indication: PRODUCT USED FOR UNKNOWN INDICATION
     Route: 064
  2. OLMESARTAN [Suspect]
     Indication: PRODUCT USED FOR UNKNOWN INDICATION
     Route: 064
  3. LERCANIDIPINE [Suspect]
     Indication: PRODUCT USED FOR UNKNOWN INDICATION
     Route: 064
  4. ENALAPRIL [Suspect]
     Indication: PRODUCT USED FOR UNKNOWN INDICATION
     Route: 064
  5. METHYLDOPA [Suspect]
     Indication: PRODUCT USED FOR UNKNOWN INDICATION
     Route: 064
  6. NIFEDIPINE [Suspect]
     Indication: PRODUCT USED FOR UNKNOWN INDICATION
     Route: 064

REACTIONS (5)
  - Supernumerary nipple [Unknown]
  - Kidney duplex [Unknown]
  - Congenital choroid plexus cyst [Unknown]
  - Congenital hearing disorder [Unknown]
  - Foetal exposure during pregnancy [Unknown]
